FAERS Safety Report 4665691-9 (Version None)
Quarter: 2005Q2

REPORT INFORMATION
  Report Type: 
  Country: None (occurrence: None)
  Receive Date: 20050517
  Receipt Date: 20050428
  Transmission Date: 20051028
  Serious: Yes (Hospitalization)
  Sender: FDA-Public Use
  Company Number: USA050496855

PATIENT
  Age: 53 Year
  Sex: Female

DRUGS (3)
  1. CYMBALTA [Suspect]
     Indication: PAIN
     Dosage: 60 MG DAY
  2. PROZAC [Suspect]
     Indication: DEPRESSION
     Dosage: 60 MG DAY
  3. NEURONTIN (GABAPENTIN PFIZER) [Concomitant]

REACTIONS (5)
  - DRUG INTERACTION [None]
  - HALLUCINATION [None]
  - MANIA [None]
  - PSYCHOTIC DISORDER [None]
  - SELF INJURIOUS BEHAVIOUR [None]
